FAERS Safety Report 6878152-3 (Version None)
Quarter: 2010Q2

REPORT INFORMATION
  Report Type: 
  Country: None (occurrence: None)
  Receive Date: 20100623
  Receipt Date: 20080711
  Transmission Date: 20101027
  Serious: No
  Sender: FDA-Public Use
  Company Number: 2008-00097

PATIENT
  Age: 37 Year
  Sex: Female

DRUGS (1)
  1. ZICAM COLD REMEDY GEL SWABS [Suspect]
     Dosage: BID X 2 DAYS
     Dates: start: 20080707, end: 20080709

REACTIONS (1)
  - ANOSMIA [None]
